FAERS Safety Report 7833863 (Version 7)
Quarter: 2013Q1

REPORT INFORMATION
  Report Type: Spontaneous
  Country: US (occurrence: US)
  Receive Date: 20110228
  Receipt Date: 20130128
  Transmission Date: 20140127
  Serious: Yes (Hospitalization, Other)
  Sender: FDA-Public Use
  Company Number: US-ASTRAZENECA-2011SE09424

PATIENT
  Age: 68 Year
  Sex: Female

DRUGS (15)
  1. SEROQUEL XR [Suspect]
     Indication: BIPOLAR DISORDER
     Route: 048
  2. SEROQUEL XR [Suspect]
     Indication: MANIA
     Route: 048
  3. SEROQUEL XR [Suspect]
     Indication: MENTAL DISORDER
     Route: 048
  4. SEROQUEL XR [Suspect]
     Indication: BIPOLAR DISORDER
     Route: 048
  5. SEROQUEL XR [Suspect]
     Indication: MANIA
     Route: 048
  6. SEROQUEL XR [Suspect]
     Indication: MENTAL DISORDER
     Route: 048
  7. SEROQUEL XR [Suspect]
     Indication: BIPOLAR DISORDER
     Route: 048
  8. SEROQUEL XR [Suspect]
     Indication: MANIA
     Route: 048
  9. SEROQUEL XR [Suspect]
     Indication: MENTAL DISORDER
     Route: 048
  10. SEROQUEL XR [Suspect]
     Indication: BIPOLAR DISORDER
     Route: 048
  11. SEROQUEL XR [Suspect]
     Indication: MANIA
     Route: 048
  12. SEROQUEL XR [Suspect]
     Indication: MENTAL DISORDER
     Route: 048
  13. MOOD STABILIZERS [Concomitant]
  14. LITHIUM [Concomitant]
  15. ADDERALL [Concomitant]

REACTIONS (13)
  - Fall [Unknown]
  - Multiple fractures [Unknown]
  - Hip fracture [Unknown]
  - Pneumonia aspiration [Unknown]
  - Condition aggravated [Unknown]
  - Stress [Unknown]
  - Hunger [Unknown]
  - Malaise [Unknown]
  - Bronchitis chronic [Unknown]
  - Dry mouth [Unknown]
  - Dyskinesia [Unknown]
  - Therapeutic response unexpected [Unknown]
  - Drug dose omission [Unknown]
